FAERS Safety Report 14370938 (Version 2)
Quarter: 2018Q1

REPORT INFORMATION
  Report Type: Spontaneous
  Country: CH (occurrence: CH)
  Receive Date: 20180110
  Receipt Date: 20180115
  Transmission Date: 20180509
  Serious: Yes (Other)
  Sender: FDA-Public Use
  Company Number: CH-AMGEN-CHESP2018002430

PATIENT
  Age: 32 Year
  Sex: Female

DRUGS (30)
  1. REVLIMID [Suspect]
     Active Substance: LENALIDOMIDE
     Indication: PLASMA CELL MYELOMA
     Dosage: UNK
     Route: 065
  2. REVLIMID [Suspect]
     Active Substance: LENALIDOMIDE
     Dosage: UNK
     Route: 065
     Dates: start: 2016
  3. VELCADE [Suspect]
     Active Substance: BORTEZOMIB
     Indication: PLASMA CELL MYELOMA
     Dosage: UNK
     Route: 065
  4. DEXAMETHASONE. [Suspect]
     Active Substance: DEXAMETHASONE
     Indication: PLASMA CELL MYELOMA
     Dosage: UNK
     Route: 065
  5. DEXAMETHASONE. [Suspect]
     Active Substance: DEXAMETHASONE
     Dosage: UNK
     Route: 065
     Dates: start: 201412
  6. CYCLOPHOSPHAMIDE. [Concomitant]
     Active Substance: CYCLOPHOSPHAMIDE
     Indication: PLASMA CELL MYELOMA
     Dosage: UNK
     Dates: start: 201310, end: 201401
  7. PLATINOL [Concomitant]
     Active Substance: CISPLATIN
     Indication: PLASMA CELL MYELOMA
     Dosage: UNK
     Dates: start: 201310, end: 201401
  8. FLUDARABINE [Concomitant]
     Active Substance: FLUDARABINE PHOSPHATE
     Dosage: UNK
  9. KYPROLIS [Suspect]
     Active Substance: CARFILZOMIB
     Indication: PLASMA CELL MYELOMA
     Dosage: UNK
     Route: 065
     Dates: start: 2016
  10. VEMURAFENIB. [Suspect]
     Active Substance: VEMURAFENIB
     Indication: PLASMA CELL MYELOMA
     Dosage: 960 MG, BID
     Route: 065
  11. BENDAMUSTINE [Concomitant]
     Active Substance: BENDAMUSTINE
     Indication: PLASMA CELL MYELOMA
     Dosage: UNK
  12. KYPROLIS [Suspect]
     Active Substance: CARFILZOMIB
     Dosage: UNK, FULL DOSES
     Route: 065
     Dates: start: 201602
  13. COBIMETINIB. [Suspect]
     Active Substance: COBIMETINIB
     Indication: PLASMA CELL MYELOMA
     Dosage: 60 MG, QD
     Route: 065
  14. REVLIMID [Suspect]
     Active Substance: LENALIDOMIDE
     Dosage: UNK
     Route: 065
     Dates: start: 201412
  15. POMALIDOMIDE [Suspect]
     Active Substance: POMALIDOMIDE
     Indication: PLASMA CELL MYELOMA
     Dosage: UNK
     Route: 065
     Dates: start: 201506
  16. MELPHALAN. [Concomitant]
     Active Substance: MELPHALAN
     Indication: PLASMA CELL MYELOMA
     Dosage: 200 MG/M2, UNK
  17. VEMURAFENIB. [Suspect]
     Active Substance: VEMURAFENIB
     Dosage: UNK
     Route: 065
  18. BUSULFAN. [Concomitant]
     Active Substance: BUSULFAN
     Dosage: UNK
  19. VELCADE [Suspect]
     Active Substance: BORTEZOMIB
     Dosage: UNK
     Route: 065
     Dates: start: 201310, end: 201401
  20. DEXAMETHASONE. [Suspect]
     Active Substance: DEXAMETHASONE
     Dosage: UNK
     Route: 065
     Dates: start: 201310, end: 201401
  21. DEXAMETHASONE. [Suspect]
     Active Substance: DEXAMETHASONE
     Dosage: UNK, FULL DOSES
     Route: 065
     Dates: start: 201602
  22. PREDNISONE. [Concomitant]
     Active Substance: PREDNISONE
     Indication: PLASMA CELL MYELOMA
     Dosage: UNK
  23. VELCADE [Suspect]
     Active Substance: BORTEZOMIB
     Dosage: UNK
     Route: 065
  24. THALIDOMIDE [Concomitant]
     Active Substance: THALIDOMIDE
     Indication: PLASMA CELL MYELOMA
     Dosage: UNK
     Dates: start: 201310, end: 201401
  25. ADRIAMYCIN [Concomitant]
     Active Substance: DOXORUBICIN HYDROCHLORIDE
     Indication: PLASMA CELL MYELOMA
     Dosage: UNK
     Dates: start: 201310, end: 201401
  26. ETOPOSIDE. [Concomitant]
     Active Substance: ETOPOSIDE
     Indication: PLASMA CELL MYELOMA
     Dosage: UNK
     Dates: start: 201310, end: 201401
  27. VEMURAFENIB. [Suspect]
     Active Substance: VEMURAFENIB
     Dosage: 720 MG, BID
     Route: 065
  28. REVLIMID [Suspect]
     Active Substance: LENALIDOMIDE
     Dosage: UNK, FULL DOSES
     Route: 065
     Dates: start: 201602
  29. VELCADE [Suspect]
     Active Substance: BORTEZOMIB
     Dosage: UNK
     Route: 065
     Dates: start: 201412
  30. DEXAMETHASONE. [Suspect]
     Active Substance: DEXAMETHASONE
     Dosage: UNK
     Route: 065
     Dates: start: 2016

REACTIONS (5)
  - Plasma cell myeloma [Unknown]
  - Refractory cancer [Unknown]
  - Visual impairment [Unknown]
  - Metastases to abdominal cavity [Unknown]
  - Fatigue [Unknown]

NARRATIVE: CASE EVENT DATE: 201603
